FAERS Safety Report 7407582-6 (Version None)
Quarter: 2011Q2

REPORT INFORMATION
  Report Type: 
  Country: None (occurrence: None)
  Receive Date: 20110406
  Receipt Date: 20110406
  Transmission Date: 20111010
  Serious: Yes (Hospitalization)
  Sender: FDA-Public Use
  Company Number: None

PATIENT
  Sex: Female
  Weight: 72.27 kg

DRUGS (2)
  1. FLUOROURACIL [Suspect]
     Dosage: 18760 MG
     Dates: end: 20100930
  2. LEUCOVORIN CALCIUM [Suspect]
     Dosage: 2800 MG
     Dates: end: 20100930

REACTIONS (1)
  - NEUROPATHY PERIPHERAL [None]
